FAERS Safety Report 17191595 (Version 1)
Quarter: 2019Q4

REPORT INFORMATION
  Report Type: Spontaneous
  Country: US (occurrence: US)
  Receive Date: 20191221
  Receipt Date: 20191221
  Transmission Date: 20200122
  Serious: No
  Sender: FDA-Public Use
  Company Number: None

PATIENT
  Age: 19 Year
  Sex: Male
  Weight: 54 kg

DRUGS (1)
  1. DUPIXENT [Suspect]
     Active Substance: DUPILUMAB
     Indication: ECZEMA
     Dosage: ?          OTHER FREQUENCY:EVERY TWO WEEKS;OTHER ROUTE:INJECTED SQ?
     Dates: start: 20190327, end: 20190701

REACTIONS (1)
  - Rash [None]

NARRATIVE: CASE EVENT DATE: 20190501
